FAERS Safety Report 9584422 (Version 1)
Quarter: 2013Q4

REPORT INFORMATION
  Report Type: Spontaneous
  Country: US (occurrence: US)
  Receive Date: 20131002
  Receipt Date: 20131002
  Transmission Date: 20140711
  Serious: No
  Sender: FDA-Public Use
  Company Number: US-AMGEN-USASP2013053272

PATIENT
  Age: 56 Year
  Sex: Female
  Weight: 34.92 kg

DRUGS (12)
  1. ENBREL [Suspect]
     Indication: PRODUCT USED FOR UNKNOWN INDICATION
     Dosage: 50 MG, QWK
     Route: 058
  2. CRESTOR [Concomitant]
     Dosage: 10 MG, UNK
  3. FENOFIBRATE [Concomitant]
     Dosage: 145 MG, UNK
  4. HYDROCHLOROTHIAZIDE WITH TRIAMTERENE [Concomitant]
     Dosage: 25-37.5 UNK
  5. TYLENOL                            /00020001/ [Concomitant]
     Dosage: 325 MG, UNK
  6. CYCLOBENZAPRINE [Concomitant]
     Dosage: 15 MG, ER UNK
  7. ZANTAC [Concomitant]
     Dosage: 75 UNK, UNK
  8. HUMIRA [Concomitant]
     Dosage: UNK, 40 MG/0.8
  9. METHOTREXATE [Concomitant]
     Dosage: 25 MG/ML, UNK
  10. LISINOPRIL/HYDROCHLOORTHIAZIDE [Concomitant]
     Dosage: UNK, 10-12.5
  11. ASPIRIN [Concomitant]
     Dosage: 81 MG, UNK
  12. FOLIC ACID [Concomitant]
     Dosage: 1 MG, UNK

REACTIONS (2)
  - Hand deformity [Unknown]
  - Ankle deformity [Unknown]
